FAERS Safety Report 5803833-X (Version None)
Quarter: 2008Q3

REPORT INFORMATION
  Report Type: 
  Country: None (occurrence: None)
  Receive Date: 20080708
  Receipt Date: 20071206
  Transmission Date: 20090109
  Serious: No
  Sender: FDA-Public Use
  Company Number: US-BOEHRINGER INGELHEIM GMBH, GERMANY-2007-BP-04424BP

PATIENT
  Sex: Female
  Weight: 78 kg

DRUGS (3)
  1. MIRAPEX [Suspect]
     Indication: PARKINSON'S DISEASE
     Route: 048
     Dates: start: 19991109, end: 20050609
  2. CYTOMEL [Concomitant]
     Indication: HYPERTHYROIDISM
     Dates: start: 20000316
  3. ELDEPRYL [Concomitant]
     Indication: PARKINSON'S DISEASE
     Dates: start: 19991129, end: 20010614

REACTIONS (2)
  - OBSESSIVE-COMPULSIVE DISORDER [None]
  - PATHOLOGICAL GAMBLING [None]
